FAERS Safety Report 10626221 (Version 1)
Quarter: 2014Q4

REPORT INFORMATION
  Report Type: Spontaneous
  Country: TW (occurrence: TW)
  Receive Date: 20141204
  Receipt Date: 20141204
  Transmission Date: 20150529
  Serious: Yes (Hospitalization)
  Sender: FDA-Public Use
  Company Number: TW-WATSON-2014-25960

PATIENT
  Age: 44 Year
  Sex: Male

DRUGS (6)
  1. RISPERIDONE (UNKNOWN) [Suspect]
     Active Substance: RISPERIDONE
     Dosage: 37.5 MG, ONCE A MONTH
     Route: 051
  2. FLUDIAZEPAM [Concomitant]
     Active Substance: FLUDIAZEPAM
     Indication: ANXIETY
     Dosage: 2 MG, BID
     Route: 065
  3. FLUNITRAZEPAM [Concomitant]
     Active Substance: FLUNITRAZEPAM
     Indication: INSOMNIA
     Dosage: 4 MG, QHS
     Route: 065
  4. QUETIAPINE (UNKNOWN) [Suspect]
     Active Substance: QUETIAPINE
     Dosage: 12.5 MG, DAILY
     Route: 065
  5. QUETIAPINE (UNKNOWN) [Suspect]
     Active Substance: QUETIAPINE
     Indication: DELUSIONAL DISORDER, PERSECUTORY TYPE
     Dosage: 25 MG, DAILY
     Route: 065
  6. RISPERIDONE (UNKNOWN) [Suspect]
     Active Substance: RISPERIDONE
     Indication: DELUSIONAL DISORDER, PERSECUTORY TYPE
     Dosage: 12.5 MG, 1/TWO WEEKS
     Route: 051

REACTIONS (1)
  - Arthralgia [Recovered/Resolved]
